FAERS Safety Report 12693155 (Version 1)
Quarter: 2016Q3

REPORT INFORMATION
  Report Type: Spontaneous
  Country: US (occurrence: None)
  Receive Date: 20160826
  Receipt Date: 20160826
  Transmission Date: 20161109
  Serious: Yes (Life-Threatening, Disabling, Other)
  Sender: FDA-Public Use
  Company Number: None

PATIENT
  Age: 52 Year
  Sex: Female
  Weight: 83.46 kg

DRUGS (4)
  1. PREINOSONE [Concomitant]
  2. ZYRTEC [Concomitant]
     Active Substance: CETIRIZINE HYDROCHLORIDE
  3. CABERGOLINE. [Suspect]
     Active Substance: CABERGOLINE
     Indication: PITUITARY TUMOUR
     Dates: start: 20160323, end: 20160403
  4. ALLEGRA [Concomitant]
     Active Substance: FEXOFENADINE HYDROCHLORIDE

REACTIONS (21)
  - Anaphylactic reaction [None]
  - Abasia [None]
  - Flank pain [None]
  - Erythema [None]
  - Bronchitis [None]
  - Throat tightness [None]
  - Chronic obstructive pulmonary disease [None]
  - Pruritus [None]
  - Impaired work ability [None]
  - Urticaria [None]
  - Skin disorder [None]
  - Swelling [None]
  - Hypoaesthesia [None]
  - Muscle spasms [None]
  - Blister [None]
  - Renal disorder [None]
  - Hypersensitivity [None]
  - Eye swelling [None]
  - Oral pain [None]
  - Deformity [None]
  - Quality of life decreased [None]

NARRATIVE: CASE EVENT DATE: 20160403
